FAERS Safety Report 24079674 (Version 2)
Quarter: 2024Q3

REPORT INFORMATION
  Report Type: Spontaneous
  Country: ES (occurrence: ES)
  Receive Date: 20240711
  Receipt Date: 20240807
  Transmission Date: 20241017
  Serious: Yes (Hospitalization, Other)
  Sender: IPSEN
  Company Number: ES-IPSEN Group, Research and Development-2024-13318

PATIENT
  Age: 65 Year
  Sex: Female

DRUGS (2)
  1. LANREOTIDE ACETATE [Suspect]
     Active Substance: LANREOTIDE ACETATE
     Indication: Neuroendocrine tumour
     Route: 065
  2. LANREOTIDE ACETATE [Suspect]
     Active Substance: LANREOTIDE ACETATE
     Indication: Carcinoid syndrome
     Route: 065

REACTIONS (5)
  - Malignant neoplasm progression [Unknown]
  - Asthenia [Unknown]
  - Decreased appetite [Unknown]
  - Off label use [Unknown]
  - Therapeutic product effect incomplete [Unknown]
